FAERS Safety Report 16945560 (Version 1)
Quarter: 2019Q4

REPORT INFORMATION
  Report Type: Spontaneous
  Country: NL (occurrence: NL)
  Receive Date: 20191022
  Receipt Date: 20191022
  Transmission Date: 20200122
  Serious: Yes (Other)
  Sender: FDA-Public Use
  Company Number: NL-MYLANLABS-2019M1099408

PATIENT
  Age: 76 Year
  Sex: Male
  Weight: 74 kg

DRUGS (14)
  1. HYDROXOCOBALAMINE [Concomitant]
     Active Substance: HYDROXOCOBALAMIN
     Dosage: 1X/2MND
  2. ENBREL [Concomitant]
     Active Substance: ETANERCEPT
     Dosage: 1X/WEEK OP MA
  3. IRBESARTAN. [Suspect]
     Active Substance: IRBESARTAN
     Indication: HYPERTENSION
     Dosage: 1X1
     Dates: start: 201709, end: 201710
  4. IRBESARTAN. [Suspect]
     Active Substance: IRBESARTAN
     Dosage: 1X1
     Route: 048
     Dates: start: 201710, end: 201711
  5. IRBESARTAN. [Suspect]
     Active Substance: IRBESARTAN
     Dosage: 1X1
     Route: 048
     Dates: start: 201711, end: 20180805
  6. CALCI CHEW D3 [Concomitant]
     Active Substance: CALCIUM CARBONATE\CHOLECALCIFEROL
     Dosage: 1 X 1
  7. FOLIUMZUUR [Concomitant]
     Active Substance: FOLIC ACID
     Dosage: 1X2 TAB EENMAAL PER WEEK
  8. SULFASALAZINE. [Concomitant]
     Active Substance: SULFASALAZINE
     Dosage: 2 X 1
  9. LOSEC [Concomitant]
     Active Substance: OMEPRAZOLE
     Dosage: 1 X 1
  10. PREDNISOLON                        /00016201/ [Concomitant]
     Active Substance: PREDNISOLONE
     Dosage: 1 X 1
  11. PLAQUENIL                          /00072602/ [Concomitant]
     Active Substance: HYDROXYCHLOROQUINE DIPHOSPHATE
     Dosage: 1 X 1
  12. CELEBREX [Concomitant]
     Active Substance: CELECOXIB
     Dosage: ZN 1 X 1
  13. DIAZEPAM. [Concomitant]
     Active Substance: DIAZEPAM
     Dosage: 1X1VN
  14. IRBESARTAN. [Suspect]
     Active Substance: IRBESARTAN
     Dosage: 1X1
     Route: 048
     Dates: start: 20180806, end: 20181115

REACTIONS (1)
  - Toxic skin eruption [Recovered/Resolved]

NARRATIVE: CASE EVENT DATE: 20181028
